FAERS Safety Report 17046359 (Version 1)
Quarter: 2019Q4

REPORT INFORMATION
  Report Type: Report from Study
  Country: US (occurrence: US)
  Receive Date: 20191119
  Receipt Date: 20191119
  Transmission Date: 20200122
  Serious: Yes (Hospitalization)
  Sender: FDA-Public Use
  Company Number: US-ROCHE-2202391

PATIENT
  Sex: Male

DRUGS (18)
  1. FISH OIL [Concomitant]
     Active Substance: FISH OIL
     Dosage: 2 CAPS ORALLY ONCE A DAY
     Route: 048
  2. METOPROLOL TARTRATE. [Concomitant]
     Active Substance: METOPROLOL TARTRATE
     Dosage: ONE TABLET WITH FOOD ORALLY TWICE DAILY
     Route: 048
  3. BUMETANIDE. [Concomitant]
     Active Substance: BUMETANIDE
     Dosage: 1 MG TABLET TWICE A DAY AS NEEDED
     Route: 048
  4. ELIQUIS [Concomitant]
     Active Substance: APIXABAN
     Route: 048
  5. POTASSIUM CHLORIDE. [Concomitant]
     Active Substance: POTASSIUM CHLORIDE
     Route: 048
  6. POLYETHYLENE GLYCOL [Concomitant]
     Active Substance: POLYETHYLENE GLYCOLS
     Dosage: POWDER 17 GM PRN
     Route: 065
  7. MAGNESIUM OXIDE. [Concomitant]
     Active Substance: MAGNESIUM OXIDE
     Route: 048
  8. COLCRYS [Concomitant]
     Active Substance: COLCHICINE
     Route: 048
  9. OMEPRAZOLE. [Concomitant]
     Active Substance: OMEPRAZOLE
     Route: 048
  10. OXYCODONE AND ACETAMINOPHEN [Concomitant]
     Active Substance: ACETAMINOPHEN\OXYCODONE HYDROCHLORIDE
     Dosage: 10-325 MG TABLET
     Route: 048
  11. TACROLIMUS. [Concomitant]
     Active Substance: TACROLIMUS
     Route: 048
  12. CHLORTHALIDONE. [Concomitant]
     Active Substance: CHLORTHALIDONE
     Dosage: 1 TABLET IN MORNING WITH FOOD ORALLY ONCE DAILY
     Route: 048
  13. ALLOPURINOL. [Concomitant]
     Active Substance: ALLOPURINOL
     Route: 048
  14. CELLCEPT [Suspect]
     Active Substance: MYCOPHENOLATE MOFETIL\MYCOPHENOLATE MOFETIL HYDROCHLORIDE
     Indication: RENAL TRANSPLANT
     Route: 048
  15. NITROSTAT [Concomitant]
     Active Substance: NITROGLYCERIN
  16. VITAMIN D3 [Concomitant]
     Active Substance: CHOLECALCIFEROL
     Dosage: 1 CAPSULE ORALLY ONCE A ADY
     Route: 048
  17. LEVEMIR [Concomitant]
     Active Substance: INSULIN DETEMIR
     Route: 058
  18. DILTIAZEM HCL CR [Concomitant]
     Dosage: ONE CAPSULE ON AN EMPTY STOMACH IN THE MORNING ORALLY ONCE A DAY
     Route: 048

REACTIONS (14)
  - Pneumonia [Unknown]
  - Nocturia [Unknown]
  - Oedema peripheral [Unknown]
  - Scar [Unknown]
  - Atrial flutter [Unknown]
  - Heart rate irregular [Unknown]
  - Hypertension [Unknown]
  - Rash maculo-papular [Unknown]
  - Cough [Unknown]
  - Obesity [Unknown]
  - Fatigue [Unknown]
  - Atrial fibrillation [Unknown]
  - Dyspnoea [Unknown]
  - Cardiac murmur [Unknown]
